FAERS Safety Report 9896614 (Version 1)
Quarter: 2014Q1

REPORT INFORMATION
  Report Type: Spontaneous
  Country: US (occurrence: US)
  Receive Date: 20140213
  Receipt Date: 20140213
  Transmission Date: 20141002
  Serious: No
  Sender: FDA-Public Use
  Company Number: US-BRISTOL-MYERS SQUIBB COMPANY-19908748

PATIENT
  Age: 68 Year
  Sex: Female
  Weight: 74.83 kg

DRUGS (4)
  1. ORENCIA [Suspect]
     Indication: RHEUMATOID ARTHRITIS
     Dates: start: 2009, end: 201306
  2. ACTEMRA [Concomitant]
     Indication: RHEUMATOID ARTHRITIS
     Dates: start: 201309
  3. HYDROCHLOROTHIAZIDE [Concomitant]
     Indication: HYPERTENSION
  4. LEVOTHYROXINE [Concomitant]
     Indication: THYROID DISORDER

REACTIONS (3)
  - Malaise [Unknown]
  - Herpes zoster [Unknown]
  - Drug ineffective [Unknown]
